FAERS Safety Report 5412529-8 (Version None)
Quarter: 2007Q3

REPORT INFORMATION
  Report Type: 
  Country: None (occurrence: None)
  Receive Date: 20070713
  Receipt Date: 20070516
  Transmission Date: 20080115
  Serious: Yes (Other)
  Sender: FDA-Public Use
  Company Number: US-JNJFOC-20061000454

PATIENT
  Age: 18 Year
  Sex: Female
  Weight: 64.8644 kg

DRUGS (1)
  1. ORTHO EVRA [Suspect]
     Indication: DYSMENORRHOEA
     Dates: start: 20050629, end: 20051113

REACTIONS (1)
  - DEEP VEIN THROMBOSIS [None]
